FAERS Safety Report 11613654 (Version 4)
Quarter: 2021Q1

REPORT INFORMATION
  Report Type: Report from Study
  Country: US (occurrence: US)
  Receive Date: 20151008
  Receipt Date: 20210219
  Transmission Date: 20210419
  Serious: Yes (Hospitalization)
  Sender: FDA-Public Use
  Company Number: US-BAXTER-2015BAX053935

PATIENT
  Age: 40 Year
  Sex: Female
  Weight: 53 kg

DRUGS (13)
  1. CYCLOPHOSPHAMIDE FOR INJECTION, USP [Suspect]
     Active Substance: CYCLOPHOSPHAMIDE
     Dosage: LAST DOSE PRIOR TO AE
     Route: 042
     Dates: start: 20150821
  2. ZANTAC [Concomitant]
     Active Substance: RANITIDINE HYDROCHLORIDE
     Indication: PROPHYLAXIS
     Route: 048
     Dates: start: 20150326
  3. DOXORUBICIN [Suspect]
     Active Substance: DOXORUBICIN
     Dosage: LAST DOSE PRIOR TO AE
     Route: 042
     Dates: start: 20150821
  4. ATIVAN [Concomitant]
     Active Substance: LORAZEPAM
     Indication: NAUSEA
     Route: 048
     Dates: start: 20150326
  5. ATIVAN [Concomitant]
     Active Substance: LORAZEPAM
     Indication: SUPPORTIVE CARE
  6. PHENERGAN [Concomitant]
     Active Substance: PROMETHAZINE HYDROCHLORIDE
     Indication: NAUSEA
     Route: 048
     Dates: start: 20150411
  7. CYCLOPHOSPHAMIDE FOR INJECTION, USP [Suspect]
     Active Substance: CYCLOPHOSPHAMIDE
     Indication: TRIPLE NEGATIVE BREAST CANCER
     Dosage: DAY 1 OF FOUR 14?DAY CYCLES (DOSE DENSE) OR FOUR 21?DAY CYCLES DURING SEGMENT 2
     Route: 042
     Dates: start: 20150724
  8. MAGIC MOUTHWASH [Concomitant]
     Active Substance: DIPHENHYDRAMINE HYDROCHLORIDE\LIDOCAINE HYDROCHLORIDE\NYSTATIN
     Indication: STOMATITIS
     Dosage: 1?2 REASPOONS, SWISH AND SPIT
     Route: 065
     Dates: start: 20150806
  9. TYLENOL [Concomitant]
     Active Substance: ACETAMINOPHEN
     Indication: SUPPORTIVE CARE
     Route: 048
     Dates: start: 20150408
  10. CARBOPLATIN. [Suspect]
     Active Substance: CARBOPLATIN
     Indication: TRIPLE NEGATIVE BREAST CANCER
     Dosage: DAY 1 OF EVERY 21 DAY CYCLE DURING SEGMENT 1, AUC = 6
     Route: 042
     Dates: start: 20150408, end: 20150617
  11. PACLITAXEL. [Suspect]
     Active Substance: PACLITAXEL
     Indication: TRIPLE NEGATIVE BREAST CANCER
     Dosage: DAY 1 OF 12 WEEKLY CYCLES DURING SEGMENT 1
     Route: 042
     Dates: start: 20150408, end: 20150709
  12. DOXORUBICIN [Suspect]
     Active Substance: DOXORUBICIN
     Indication: TRIPLE NEGATIVE BREAST CANCER
     Dosage: DAY 1 OF FOUR 14?DAY CYCLES (DOSE DENSE) OR FOUR 21?DAY CYCLES DURING SEGMENT 2
     Route: 042
     Dates: start: 20150724
  13. IBUPROFEN. [Concomitant]
     Active Substance: IBUPROFEN
     Indication: SUPPORTIVE CARE
     Route: 048
     Dates: start: 20150724

REACTIONS (2)
  - Syncope [Recovered/Resolved]
  - Non-cardiac chest pain [Recovered/Resolved]

NARRATIVE: CASE EVENT DATE: 20150827
